FAERS Safety Report 19216558 (Version 1)
Quarter: 2021Q2

REPORT INFORMATION
  Report Type: Spontaneous
  Country: IN (occurrence: IN)
  Receive Date: 20210505
  Receipt Date: 20210505
  Transmission Date: 20210717
  Serious: No
  Sender: FDA-Public Use
  Company Number: IN-ALKEM-IN-ALKEM-2021-00400

PATIENT
  Age: 34 Year
  Sex: Female

DRUGS (1)
  1. TAXIM?O [Suspect]
     Active Substance: CEFIXIME
     Indication: PRODUCT USED FOR UNKNOWN INDICATION
     Dosage: UNK
     Route: 065

REACTIONS (1)
  - Abdominal pain [Not Recovered/Not Resolved]
